FAERS Safety Report 11144640 (Version 1)
Quarter: 2015Q2

REPORT INFORMATION
  Report Type: Spontaneous
  Country: FR (occurrence: FR)
  Receive Date: 20150528
  Receipt Date: 20150528
  Transmission Date: 20150821
  Serious: Yes (Life-Threatening, Other)
  Sender: FDA-Public Use
  Company Number: FR-PFIZER INC-2015171082

PATIENT
  Age: 57 Year
  Sex: Male

DRUGS (9)
  1. ACUPAN [Concomitant]
     Active Substance: NEFOPAM HYDROCHLORIDE
     Dosage: UNK
  2. MOVICOL [Concomitant]
     Active Substance: POLYETHYLENE GLYCOL 3350\POTASSIUM CHLORIDE\SODIUM BICARBONATE\SODIUM CHLORIDE
     Dosage: UNK
  3. IDARUBICIN HCL [Suspect]
     Active Substance: IDARUBICIN HYDROCHLORIDE
     Indication: ACUTE MYELOID LEUKAEMIA
     Dosage: UNK
     Route: 042
     Dates: start: 20150227
  4. TAVANIC [Suspect]
     Active Substance: LEVOFLOXACIN
     Indication: ANTIBIOTIC PROPHYLAXIS
     Dosage: UNK
     Route: 042
     Dates: start: 20150227
  5. NOXAFIL [Suspect]
     Active Substance: POSACONAZOLE
     Indication: ANTIBIOTIC PROPHYLAXIS
     Dosage: UNK
     Route: 042
     Dates: start: 20150227
  6. LEVOTHYROX [Concomitant]
     Active Substance: LEVOTHYROXINE
     Dosage: UNK
  7. MORPHINE [Concomitant]
     Active Substance: MORPHINE
     Dosage: UNK
  8. ARACYTINE [Suspect]
     Active Substance: CYTARABINE
     Indication: ACUTE MYELOID LEUKAEMIA
     Dosage: UNK
     Route: 042
     Dates: start: 20150227
  9. SERESTA [Concomitant]
     Active Substance: OXAZEPAM
     Dosage: UNK

REACTIONS (4)
  - Febrile bone marrow aplasia [Recovered/Resolved]
  - Atrial fibrillation [Unknown]
  - Oliguria [Unknown]
  - Pleurisy [Unknown]

NARRATIVE: CASE EVENT DATE: 2015
